FAERS Safety Report 7062262-4 (Version None)
Quarter: 2010Q4

REPORT INFORMATION
  Report Type: 
  Country: None (occurrence: None)
  Receive Date: 20101026
  Receipt Date: 20101001
  Transmission Date: 20110411
  Serious: Yes (Other)
  Sender: FDA-Public Use
  Company Number: US-MYLANLABS-2010S1016868

PATIENT
  Age: 28 Year
  Sex: Male
  Weight: 90 kg

DRUGS (4)
  1. AMNESTEEM [Suspect]
     Indication: ACNE CYSTIC
     Dates: start: 20100426
  2. AMNESTEEM [Suspect]
     Dates: end: 20100910
  3. CLARAVIS [Suspect]
     Indication: ACNE CYSTIC
     Route: 048
     Dates: start: 20100426, end: 20100910
  4. CLARAVIS [Suspect]
     Route: 048
     Dates: end: 20100910

REACTIONS (4)
  - GAIT DISTURBANCE [None]
  - MYALGIA [None]
  - PNEUMONIA MYCOPLASMAL [None]
  - RASH [None]
